FAERS Safety Report 13284122 (Version 2)
Quarter: 2017Q1

REPORT INFORMATION
  Report Type: Spontaneous
  Country: US (occurrence: US)
  Receive Date: 20170301
  Receipt Date: 20170322
  Transmission Date: 20170428
  Serious: Yes (Hospitalization)
  Sender: FDA-Public Use
  Company Number: US-PFIZER INC-2017082006

PATIENT
  Sex: Female

DRUGS (1)
  1. REVATIO [Suspect]
     Active Substance: SILDENAFIL CITRATE
     Indication: PULMONARY HYPERTENSION
     Dosage: 40 MG, 3X/DAY
     Route: 048

REACTIONS (3)
  - Urinary tract infection [Unknown]
  - Product use issue [Unknown]
  - Dehydration [Unknown]

NARRATIVE: CASE EVENT DATE: 20170218
